FAERS Safety Report 12235982 (Version 2)
Quarter: 2016Q2

REPORT INFORMATION
  Report Type: Other
  Country: JP (occurrence: JP)
  Receive Date: 20160404
  Receipt Date: 20160421
  Transmission Date: 20160815
  Serious: Yes (Other)
  Sender: FDA-Public Use
  Company Number: JP-LUNDBECK-DKLU2012012

PATIENT
  Sex: Female

DRUGS (5)
  1. FOLIC ACID. [Concomitant]
     Active Substance: FOLIC ACID
     Indication: PRODUCT USED FOR UNKNOWN INDICATION
     Route: 065
  2. SODIUM VALPROATE [Suspect]
     Active Substance: VALPROATE SODIUM
     Indication: EPILEPSY
     Route: 048
  3. CLONAZEPAM. [Suspect]
     Active Substance: CLONAZEPAM
     Indication: EPILEPSY
     Route: 065
  4. MYSTAN [Suspect]
     Active Substance: CLOBAZAM
     Indication: EPILEPSY
     Route: 048
  5. PHENOBARBITAL. [Suspect]
     Active Substance: PHENOBARBITAL
     Indication: EPILEPSY
     Route: 065

REACTIONS (2)
  - Exposure during pregnancy [Unknown]
  - Stillbirth [Unknown]
